FAERS Safety Report 8589152-X (Version None)
Quarter: 2012Q3

REPORT INFORMATION
  Report Type: 
  Country: None (occurrence: None)
  Receive Date: 20120813
  Receipt Date: 20120808
  Transmission Date: 20120928
  Serious: No
  Sender: FDA-Public Use
  Company Number: US-PFIZER INC-2012193645

PATIENT
  Age: 46 Year

DRUGS (6)
  1. PHENERGAN HCL [Suspect]
     Dosage: UNK
  2. ZITHROMAX [Suspect]
     Dosage: UNK
  3. PHENTERMINE [Suspect]
     Dosage: UNK
  4. ASPIRIN [Suspect]
     Dosage: UNK
  5. TETRACYCLINE HCL [Suspect]
     Dosage: UNK
  6. TIZANIDINE [Suspect]
     Dosage: UNK

REACTIONS (1)
  - DRUG HYPERSENSITIVITY [None]
